FAERS Safety Report 16327727 (Version 1)
Quarter: 2019Q2

REPORT INFORMATION
  Report Type: Spontaneous
  Country: DE (occurrence: DE)
  Receive Date: 20190517
  Receipt Date: 20190517
  Transmission Date: 20190711
  Serious: Yes (Other)
  Sender: FDA-Public Use
  Company Number: DE-BAUSCH-BL-2019-014535

PATIENT
  Age: 70 Year
  Sex: Male

DRUGS (6)
  1. CEFUROXIME. [Suspect]
     Active Substance: CEFUROXIME
     Indication: CONJUNCTIVITIS
     Route: 065
     Dates: end: 20181113
  2. CEFUROXIME. [Suspect]
     Active Substance: CEFUROXIME
     Indication: PHARYNGITIS
  3. CEFUROXIME. [Suspect]
     Active Substance: CEFUROXIME
     Indication: INFLUENZA LIKE ILLNESS
  4. GENTAMYCIN [Suspect]
     Active Substance: GENTAMICIN
     Indication: PHARYNGITIS
  5. GENTAMYCIN [Suspect]
     Active Substance: GENTAMICIN
     Indication: INFLUENZA LIKE ILLNESS
     Route: 065
  6. GENTAMYCIN [Suspect]
     Active Substance: GENTAMICIN
     Indication: CONJUNCTIVITIS

REACTIONS (4)
  - Swelling of eyelid [Not Recovered/Not Resolved]
  - Swelling face [Not Recovered/Not Resolved]
  - Eye haemorrhage [Not Recovered/Not Resolved]
  - Lipoedema [Not Recovered/Not Resolved]
